FAERS Safety Report 6161566-7 (Version None)
Quarter: 2009Q2

REPORT INFORMATION
  Report Type: 
  Country: None (occurrence: None)
  Receive Date: 20090421
  Receipt Date: 20090415
  Transmission Date: 20091009
  Serious: Yes (Death, Other)
  Sender: FDA-Public Use
  Company Number: US-ROXANE LABORATORIES, INC.-2009-RO-00387RO

PATIENT
  Sex: Male

DRUGS (11)
  1. MORPHINE [Suspect]
  2. COCAINE [Suspect]
  3. CODEINE [Suspect]
  4. 6-ACETYLMORPHINE [Suspect]
  5. XYLAZINE [Suspect]
  6. FENTANYL [Suspect]
  7. COCAETHYLENE [Suspect]
  8. ECGONINE METHYL ESTER [Suspect]
  9. PROCAINE HCL [Suspect]
  10. QUININE/QUINIDINE [Suspect]
  11. HEROIN [Concomitant]

REACTIONS (2)
  - ADVERSE DRUG REACTION [None]
  - HAEMORRHAGE [None]
